FAERS Safety Report 24545015 (Version 1)
Quarter: 2024Q4

REPORT INFORMATION
  Report Type: Spontaneous
  Country: DE (occurrence: DE)
  Receive Date: 20241024
  Receipt Date: 20241024
  Transmission Date: 20250115
  Serious: Yes (Other)
  Sender: DEXCEL
  Company Number: None

PATIENT
  Sex: Female

DRUGS (3)
  1. LEVETIRACETAM [Interacting]
     Active Substance: LEVETIRACETAM
     Indication: Generalised tonic-clonic seizure
     Dosage: 500 MG 1-0-1
     Route: 048
     Dates: start: 202404
  2. RISPERIDONE [Interacting]
     Active Substance: RISPERIDONE
     Indication: Product used for unknown indication
     Dosage: 2X0.5 MG
  3. Pipamperon 40 mg [Concomitant]
     Dosage: 40 MG 0 - 0 - 1/2 - 1

REACTIONS (4)
  - Parkinsonism [Recovering/Resolving]
  - Mobility decreased [Recovering/Resolving]
  - Drug interaction [Unknown]
  - Torticollis [Recovering/Resolving]

NARRATIVE: CASE EVENT DATE: 20240403
